FAERS Safety Report 4538184-7 (Version None)
Quarter: 2004Q4

REPORT INFORMATION
  Report Type: 
  Country: None (occurrence: None)
  Receive Date: 20041223
  Receipt Date: 20041223
  Transmission Date: 20050328
  Serious: Yes (Other)
  Sender: FDA-Public Use
  Company Number: None

PATIENT
  Sex: Male

DRUGS (1)
  1. CORNEA TISSUE [Suspect]

REACTIONS (2)
  - CORNEAL GRAFT REJECTION [None]
  - CORNEAL OEDEMA [None]
